FAERS Safety Report 6024064-7 (Version None)
Quarter: 2008Q4

REPORT INFORMATION
  Report Type: 
  Country: None (occurrence: None)
  Receive Date: 20081230
  Receipt Date: 20081218
  Transmission Date: 20090506
  Serious: Yes (Death)
  Sender: FDA-Public Use
  Company Number: US-JNJCH-2008058045

PATIENT
  Age: 56 Year
  Sex: Female

DRUGS (2)
  1. ASPIRIN [Suspect]
     Indication: SUICIDE ATTEMPT
     Dosage: TEXT:40 TABLETS
     Route: 048
  2. INDOMETHACIN [Suspect]
     Indication: SUICIDE ATTEMPT
     Dosage: TEXT:20 TABLETS
     Route: 048

REACTIONS (13)
  - ANION GAP ABNORMAL [None]
  - ATRIAL TACHYCARDIA [None]
  - BLOOD ELECTROLYTES ABNORMAL [None]
  - DRUG SCREEN POSITIVE [None]
  - DYSPNOEA [None]
  - HAEMATOCRIT INCREASED [None]
  - HEART RATE INCREASED [None]
  - HYPERHIDROSIS [None]
  - INTENTIONAL OVERDOSE [None]
  - RESTLESSNESS [None]
  - THERAPEUTIC AGENT TOXICITY [None]
  - VOMITING [None]
  - WHITE BLOOD CELL COUNT INCREASED [None]
